FAERS Safety Report 4479496-5 (Version None)
Quarter: 2004Q4

REPORT INFORMATION
  Report Type: 
  Country: None (occurrence: None)
  Receive Date: 20041018
  Receipt Date: 20041008
  Transmission Date: 20050328
  Serious: Yes (Life-Threatening, Hospitalization)
  Sender: FDA-Public Use
  Company Number: JP-2004-030657

PATIENT
  Age: 54 Year
  Sex: Female
  Weight: 51.2 kg

DRUGS (4)
  1. FLUDARA [Suspect]
     Indication: STEM CELL TRANSPLANT
     Dosage: 44 MG, 1X/DAY, INTRAVENOUS
     Route: 042
     Dates: start: 20040121, end: 20040126
  2. CYCLOSPORINE [Suspect]
     Indication: PROPHYLAXIS AGAINST TRANSPLANT REJECTION
     Dosage: 40 MG, 2X/DAY, ORAL
     Route: 048
     Dates: start: 20040513, end: 20040815
  3. BUSULFAN [Concomitant]
  4. METHOTREXATE [Concomitant]

REACTIONS (8)
  - BRAIN OEDEMA [None]
  - DEPRESSED LEVEL OF CONSCIOUSNESS [None]
  - FALL [None]
  - HYPERTENSION [None]
  - INTRAVENTRICULAR HAEMORRHAGE [None]
  - PARALYSIS [None]
  - VASCULAR CALCIFICATION [None]
  - VOMITING [None]
